FAERS Safety Report 6554065-1 (Version None)
Quarter: 2010Q1

REPORT INFORMATION
  Report Type: 
  Country: None (occurrence: None)
  Receive Date: 20100127
  Receipt Date: 20100125
  Transmission Date: 20100710
  Serious: Yes (Death)
  Sender: FDA-Public Use
  Company Number: DE-SANOFI-AVENTIS-2010SA004078

PATIENT
  Age: 72 Year
  Sex: Female

DRUGS (5)
  1. MULTAQ [Suspect]
     Indication: ATRIAL FIBRILLATION
     Route: 048
     Dates: start: 20100101
  2. VERAPAMIL [Concomitant]
     Route: 042
     Dates: start: 20100115, end: 20100115
  3. DIGIMERCK [Concomitant]
     Route: 042
     Dates: start: 20100115, end: 20100115
  4. AMIODARONE [Concomitant]
     Route: 042
     Dates: start: 20100115, end: 20100115
  5. ANTITHROMBOTIC AGENTS [Concomitant]
     Route: 065
     Dates: start: 20100101

REACTIONS (1)
  - SUDDEN CARDIAC DEATH [None]
